FAERS Safety Report 9748863 (Version 1)
Quarter: 2013Q4

REPORT INFORMATION
  Report Type: Spontaneous
  Country: US (occurrence: US)
  Receive Date: 20131212
  Receipt Date: 20131212
  Transmission Date: 20140711
  Serious: No
  Sender: FDA-Public Use
  Company Number: US-INCYTE CORPORATION-2013IN002091

PATIENT
  Age: 82 Year
  Sex: Female
  Weight: 51.25 kg

DRUGS (6)
  1. JAKAFI [Suspect]
     Dosage: 30 MG (1 20MG TABLET WITH 1 10MG TABLET), QD
     Route: 048
  2. VITAMIN C [Concomitant]
     Dosage: 500 MG, UNK
  3. LEVOTHYROXINE [Concomitant]
     Dosage: 25 MCG, UNK
  4. ASA LOW DOSE [Concomitant]
     Dosage: 81 MG, UNK
  5. CALCIUM + VITAMIN D [Concomitant]
  6. TRIPLE FLEX [Concomitant]

REACTIONS (1)
  - Diarrhoea [Unknown]
